FAERS Safety Report 4607170-0 (Version None)
Quarter: 2005Q1

REPORT INFORMATION
  Report Type: 
  Country: None (occurrence: None)
  Receive Date: 20050311
  Receipt Date: 20050311
  Transmission Date: 20050727
  Serious: Yes (Hospitalization, Other)
  Sender: FDA-Public Use
  Company Number: None

PATIENT
  Age: 60 Year
  Sex: Female
  Weight: 81 kg

DRUGS (9)
  1. TEQUIN [Suspect]
     Indication: PNEUMONIA
     Dosage: 400 MG IV QD
     Route: 042
     Dates: start: 20040621, end: 20040628
  2. SOLU-MEDROL [Suspect]
     Indication: ASTHMA
     Dosage: 40 MG IV Q  6 HRS
     Route: 042
     Dates: start: 20040621, end: 20040628
  3. HYZAAR [Concomitant]
  4. SINGULAIR [Concomitant]
  5. SOLU-MEDROL [Concomitant]
  6. HUMULIN N [Concomitant]
  7. REGULAR INSULIN [Concomitant]
  8. CLARITIN [Concomitant]
  9. UNIPHYL [Concomitant]

REACTIONS (1)
  - HYPERGLYCAEMIA [None]
